FAERS Safety Report 9297448 (Version 1)
Quarter: 2013Q2

REPORT INFORMATION
  Report Type: Spontaneous
  Country: US (occurrence: None)
  Receive Date: 20130517
  Receipt Date: 20130517
  Transmission Date: 20140414
  Serious: Yes (Hospitalization)
  Sender: FDA-Public Use
  Company Number: None

PATIENT
  Age: 78 Year
  Sex: Male
  Weight: 91 kg

DRUGS (1)
  1. TOPOTECAN [Suspect]
     Indication: SMALL CELL LUNG CANCER
     Route: 048
     Dates: start: 20130218, end: 20130223

REACTIONS (3)
  - Traumatic lung injury [None]
  - Respiratory distress [None]
  - Chest X-ray abnormal [None]
